FAERS Safety Report 19110856 (Version 2)
Quarter: 2021Q2

REPORT INFORMATION
  Report Type: Report from Study
  Country: IT (occurrence: IT)
  Receive Date: 20210408
  Receipt Date: 20210420
  Transmission Date: 20210717
  Serious: Yes (Other)
  Sender: FDA-Public Use
  Company Number: IT-JNJFOC-20210406935

PATIENT

DRUGS (2)
  1. REMICADE [Suspect]
     Active Substance: INFLIXIMAB
     Indication: INFLAMMATORY BOWEL DISEASE
     Route: 042
  2. ADALIMUMAB [Suspect]
     Active Substance: ADALIMUMAB
     Indication: INFLAMMATORY BOWEL DISEASE
     Route: 065

REACTIONS (16)
  - Cytomegalovirus infection [Unknown]
  - Tuberculosis [Unknown]
  - Lupus-like syndrome [Unknown]
  - Arthralgia [Unknown]
  - Oropharyngeal cancer [Unknown]
  - Skin disorder [Unknown]
  - Infection [Unknown]
  - Prostate cancer [Unknown]
  - Blood disorder [Unknown]
  - Infusion related reaction [Unknown]
  - Renal cancer [Unknown]
  - Drug ineffective [Unknown]
  - Dermatitis exfoliative generalised [Unknown]
  - Thyroid cancer [Unknown]
  - Hyperpyrexia [Unknown]
  - Psoriasis [Unknown]
